FAERS Safety Report 7918663-2 (Version None)
Quarter: 2011Q4

REPORT INFORMATION
  Report Type: 
  Country: None (occurrence: None)
  Receive Date: 20111116
  Receipt Date: 20111109
  Transmission Date: 20120403
  Serious: Yes (Other)
  Sender: FDA-Public Use
  Company Number: US-BAYER-2011-109773

PATIENT
  Age: 82 Year
  Sex: Male
  Weight: 98 kg

DRUGS (4)
  1. AMLODIPINE [Concomitant]
  2. VICODIN [Concomitant]
  3. METOPROLOL TARTRATE [Concomitant]
  4. NAPROXEN (ALEVE) [Suspect]
     Indication: ANALGESIC THERAPY
     Dosage: 1 DF, QD
     Route: 048
     Dates: start: 20111106

REACTIONS (2)
  - FOREIGN BODY [None]
  - CHOKING [None]
